FAERS Safety Report 9664949 (Version 1)
Quarter: 2013Q4

REPORT INFORMATION
  Report Type: Report from Study
  Country: JP (occurrence: JP)
  Receive Date: 20131101
  Receipt Date: 20131101
  Transmission Date: 20140711
  Serious: Yes (Hospitalization)
  Sender: FDA-Public Use
  Company Number: PHHY2013JP122596

PATIENT
  Age: 70 Year
  Sex: Male

DRUGS (14)
  1. FTY 720 [Suspect]
     Indication: MULTIPLE SCLEROSIS
     Dosage: 0.5 MG, QD
     Route: 048
     Dates: start: 20130409, end: 20130823
  2. LIORESAL [Concomitant]
     Indication: MUSCLE SPASTICITY
     Dosage: 30 MG, QD
     Route: 048
     Dates: end: 20130707
  3. LIORESAL [Concomitant]
     Dosage: 35 MG, QD
     Route: 048
     Dates: start: 20130708
  4. LIORESAL [Concomitant]
     Dosage: 40 MG, QD
     Dates: start: 20130710
  5. SYMMETREL [Concomitant]
     Indication: MALAISE
     Dosage: 150 MG, UNK
  6. DIOVAN [Concomitant]
     Indication: HYPERTENSION
     Dosage: 80 MG, UNK
  7. AVONEX [Concomitant]
     Indication: MULTIPLE SCLEROSIS
     Dates: end: 20130405
  8. SOL-MELCORT [Concomitant]
     Indication: MULTIPLE SCLEROSIS
     Dosage: 1000 MG, UNK
     Dates: start: 20121120, end: 20130331
  9. ENDOXAN [Concomitant]
     Indication: MULTIPLE SCLEROSIS
     Dosage: 1000 MG, UNK
     Dates: start: 20121127, end: 20130201
  10. LYRICA [Concomitant]
     Indication: SENSORY DISTURBANCE
     Dosage: 150 MG, UNK
  11. VITAMEDIN S [Concomitant]
     Indication: SENSORY DISTURBANCE
     Dosage: 75 MG, UNK
  12. MYONAL [Concomitant]
     Indication: SPASTIC PARALYSIS
     Dosage: 150 MG, UNK
  13. FLIVAS [Concomitant]
     Indication: BENIGN PROSTATIC HYPERPLASIA
     Dosage: 50 MG, UNK
  14. VITAMIN C [Concomitant]
     Dates: start: 20130628

REACTIONS (1)
  - Muscle spasticity [Not Recovered/Not Resolved]
